FAERS Safety Report 11436027 (Version 9)
Quarter: 2015Q4

REPORT INFORMATION
  Report Type: Spontaneous
  Country: US (occurrence: US)
  Receive Date: 20150831
  Receipt Date: 20151214
  Transmission Date: 20160304
  Serious: Yes (Death, Hospitalization, Other)
  Sender: FDA-Public Use
  Company Number: US-UNITED THERAPEUTICS-UNT-2015-010463

PATIENT
  Age: 74 Year
  Sex: Female
  Weight: 63.49 kg

DRUGS (6)
  1. REMODULIN [Suspect]
     Active Substance: TREPROSTINIL
     Dosage: 0.083 ?G/KG, CONTINUING
     Route: 041
     Dates: start: 20150415
  2. COUMADIN [Concomitant]
     Active Substance: WARFARIN SODIUM
     Indication: PRODUCT USED FOR UNKNOWN INDICATION
  3. REMODULIN [Suspect]
     Active Substance: TREPROSTINIL
     Dosage: 0.077 ?G/KG, CONTINUING
     Route: 041
  4. REMODULIN [Suspect]
     Active Substance: TREPROSTINIL
     Dosage: 0.077 ?G/KG, CONTINUING
     Route: 041
     Dates: start: 20150415
  5. REMODULIN [Suspect]
     Active Substance: TREPROSTINIL
     Indication: PULMONARY HYPERTENSION
     Dosage: 0.083 ?G/KG, CONTINUING
     Route: 041
     Dates: start: 20091029
  6. REMODULIN [Suspect]
     Active Substance: TREPROSTINIL
     Dosage: 0.022 ?G/KG, CONTINUING
     Route: 041

REACTIONS (16)
  - Oxygen saturation decreased [Unknown]
  - Respiratory failure [Unknown]
  - Pneumonia [Unknown]
  - Device use error [Unknown]
  - Hyperhidrosis [Unknown]
  - Dyspnoea [Unknown]
  - Neck pain [Unknown]
  - Nausea [Unknown]
  - Drug dose omission [Unknown]
  - General physical health deterioration [Fatal]
  - Renal failure [Unknown]
  - Respiratory distress [Unknown]
  - Feeling abnormal [Unknown]
  - Headache [Unknown]
  - Wound [Unknown]
  - Pleural effusion [Unknown]

NARRATIVE: CASE EVENT DATE: 2015
